FAERS Safety Report 10434489 (Version 2)
Quarter: 2014Q4

REPORT INFORMATION
  Report Type: Report from Study
  Country: US (occurrence: US)
  Receive Date: 20140905
  Receipt Date: 20141202
  Transmission Date: 20150528
  Serious: Yes (Hospitalization)
  Sender: FDA-Public Use
  Company Number: US-TAKEDA-2014MPI002346

PATIENT
  Age: 92 Year
  Sex: Male
  Weight: 99.77 kg

DRUGS (2)
  1. VELCADE [Suspect]
     Active Substance: BORTEZOMIB
     Indication: PLASMA CELL MYELOMA
     Dosage: 1 MG/M2, 1/WEEK
     Route: 058
     Dates: start: 20140328, end: 20140404
  2. LASIX [Concomitant]
     Active Substance: FUROSEMIDE
     Dosage: UNK

REACTIONS (2)
  - Fluid overload [Recovered/Resolved]
  - Blood creatinine increased [None]

NARRATIVE: CASE EVENT DATE: 20140414
